FAERS Safety Report 16893672 (Version 2)
Quarter: 2020Q1

REPORT INFORMATION
  Report Type: Spontaneous
  Country: JP (occurrence: JP)
  Receive Date: 20191008
  Receipt Date: 20200203
  Transmission Date: 20200409
  Serious: Yes (Other)
  Sender: FDA-Public Use
  Company Number: JP-PFIZER INC-2019424882

PATIENT
  Age: 6 Decade
  Sex: Female

DRUGS (1)
  1. XELJANZ [Suspect]
     Active Substance: TOFACITINIB CITRATE
     Indication: COLITIS ULCERATIVE
     Dosage: 20 MG, DAILY

REACTIONS (3)
  - Herpes zoster [Recovering/Resolving]
  - Therapeutic response decreased [Unknown]
  - Melaena [Unknown]
